FAERS Safety Report 13063431 (Version 1)
Quarter: 2016Q4

REPORT INFORMATION
  Report Type: Report from Study
  Country: US (occurrence: US)
  Receive Date: 20161227
  Receipt Date: 20161227
  Transmission Date: 20170207
  Serious: No
  Sender: FDA-Public Use
  Company Number: US-AMGEN-USASL2016180267

PATIENT
  Age: 54 Year
  Sex: Female

DRUGS (9)
  1. COUMADIN [Concomitant]
     Active Substance: WARFARIN SODIUM
     Dosage: QD (7 MG TO10 MG ONCE DAILY)
  2. NEURONTIN [Concomitant]
     Active Substance: GABAPENTIN
     Indication: TREMOR
     Dosage: 300 MG, TID
  3. ASPIRIN. [Concomitant]
     Active Substance: ASPIRIN
     Dosage: 81 MG, UNK
  4. CLARITIN [Concomitant]
     Active Substance: LORATADINE
  5. ENBREL [Suspect]
     Active Substance: ETANERCEPT
     Indication: RHEUMATOID ARTHRITIS
     Dosage: 50 MG, QWK
     Route: 065
     Dates: start: 2014
  6. GLUCOPHAGE LA [Concomitant]
     Active Substance: METFORMIN HYDROCHLORIDE
     Dosage: 500 MG, BID
  7. IRON [Concomitant]
     Active Substance: IRON
     Dosage: UNK
  8. VITAMIN D [Concomitant]
     Active Substance: CHOLECALCIFEROL
     Dosage: UNK
  9. HYDROCHLOROTHIAZIDE. [Concomitant]
     Active Substance: HYDROCHLOROTHIAZIDE
     Dosage: UNK

REACTIONS (4)
  - Muscle tightness [Unknown]
  - Ear discomfort [Unknown]
  - Sinusitis [Unknown]
  - Jaw disorder [Unknown]

NARRATIVE: CASE EVENT DATE: 20161217
